FAERS Safety Report 5608192-3 (Version None)
Quarter: 2008Q1

REPORT INFORMATION
  Report Type: 
  Country: None (occurrence: None)
  Receive Date: 20080130
  Receipt Date: 20080118
  Transmission Date: 20080703
  Serious: Yes (Hospitalization, Other)
  Sender: FDA-Public Use
  Company Number: US-ELI_LILLY_AND_COMPANY-US200801003978

PATIENT
  Sex: Female

DRUGS (2)
  1. HUMALOG [Suspect]
  2. BONIVA [Concomitant]
     Indication: OSTEOPOROSIS

REACTIONS (18)
  - AORTIC VALVE INCOMPETENCE [None]
  - ARTHRITIS [None]
  - BLOOD GLUCOSE DECREASED [None]
  - BLOOD GLUCOSE INCREASED [None]
  - CONDITION AGGRAVATED [None]
  - CRANIAL NERVE INJURY [None]
  - DIABETIC NEUROPATHY [None]
  - DIPLOPIA [None]
  - FACIAL PALSY [None]
  - HEART VALVE CALCIFICATION [None]
  - IMPAIRED INSULIN SECRETION [None]
  - INJECTION SITE BRUISING [None]
  - ISCHAEMIC STROKE [None]
  - OSTEOPOROSIS [None]
  - PHARMACEUTICAL PRODUCT COMPLAINT [None]
  - TREMOR [None]
  - VISUAL DISTURBANCE [None]
  - VISUAL FIELD DEFECT [None]
